FAERS Safety Report 5171293-0 (Version None)
Quarter: 2006Q4

REPORT INFORMATION
  Report Type: 
  Country: None (occurrence: None)
  Receive Date: 20061213
  Receipt Date: 20060825
  Transmission Date: 20070319
  Serious: Yes (Hospitalization)
  Sender: FDA-Public Use
  Company Number: US-AMGEN-KDL191384

PATIENT
  Sex: Female
  Weight: 96.7 kg

DRUGS (7)
  1. ENBREL [Suspect]
     Indication: PSORIATIC ARTHROPATHY
     Route: 058
     Dates: start: 20060801, end: 20060922
  2. METHOTREXATE [Concomitant]
     Dates: start: 20060301
  3. WELLBUTRIN [Concomitant]
  4. KLONOPIN [Concomitant]
  5. FENTANYL [Concomitant]
  6. ADVAIR DISKUS 100/50 [Concomitant]
  7. REQUIP [Concomitant]

REACTIONS (7)
  - ASTHMA [None]
  - CHILLS [None]
  - DIZZINESS POSTURAL [None]
  - HEADACHE [None]
  - HERPES ZOSTER [None]
  - NECK PAIN [None]
  - PYREXIA [None]
